FAERS Safety Report 8261642-9 (Version None)
Quarter: 2012Q2

REPORT INFORMATION
  Report Type: 
  Country: None (occurrence: None)
  Receive Date: 20120405
  Receipt Date: 20120329
  Transmission Date: 20120825
  Serious: Yes (Other)
  Sender: FDA-Public Use
  Company Number: US-SANOFI-AVENTIS-2012SA015141

PATIENT
  Age: 56 Year
  Sex: Female

DRUGS (3)
  1. SOLOSTAR [Suspect]
     Dates: start: 20110101, end: 20120301
  2. LANTUS [Suspect]
     Dosage: DOSE:60 UNIT(S)
     Route: 058
     Dates: start: 20110101, end: 20120301
  3. APIDRA [Concomitant]
     Route: 058

REACTIONS (9)
  - LIMB INJURY [None]
  - PRODUCT QUALITY ISSUE [None]
  - ASTHENIA [None]
  - DEVICE DIFFICULT TO USE [None]
  - PAIN IN EXTREMITY [None]
  - NODULE [None]
  - JOINT CREPITATION [None]
  - MUSCULAR WEAKNESS [None]
  - JOINT DISLOCATION [None]
